FAERS Safety Report 8450455-0 (Version None)
Quarter: 2012Q2

REPORT INFORMATION
  Report Type: 
  Country: None (occurrence: None)
  Receive Date: 20120620
  Receipt Date: 20120614
  Transmission Date: 20120825
  Serious: Yes (Death, Hospitalization, Other)
  Sender: FDA-Public Use
  Company Number: US-ASTELLAS-2011US007843

PATIENT
  Sex: Male
  Weight: 90 kg

DRUGS (1)
  1. PROGRAF [Suspect]
     Indication: LIVER TRANSPLANT
     Dosage: 2 MG, BID
     Route: 048
     Dates: start: 20100509, end: 20120101

REACTIONS (4)
  - HOSPITALISATION [None]
  - DEATH [None]
  - FALL [None]
  - LIVER TRANSPLANT [None]
